FAERS Safety Report 11289582 (Version 12)
Quarter: 2016Q3

REPORT INFORMATION
  Report Type: Report from Study
  Country: CN (occurrence: CN)
  Receive Date: 20150721
  Receipt Date: 20160815
  Transmission Date: 20161109
  Serious: Yes (Hospitalization)
  Sender: FDA-Public Use
  Company Number: CN-ASTRAZENECA-2015SE68455

PATIENT
  Age: 23065 Day
  Sex: Male

DRUGS (26)
  1. LANSOPRAZOLE. [Concomitant]
     Active Substance: LANSOPRAZOLE
     Indication: GASTROOESOPHAGEAL REFLUX PROPHYLAXIS
     Route: 042
     Dates: start: 20150703, end: 20150714
  2. STRUCTURAL FAT EMULSION [Concomitant]
     Indication: NUTRITIONAL SUPPLEMENTATION
     Route: 042
     Dates: start: 20150707, end: 20150710
  3. POTASSIUM CITRATE. [Concomitant]
     Active Substance: POTASSIUM CITRATE
     Indication: BLOOD POTASSIUM DECREASED
     Route: 048
     Dates: start: 20150712, end: 20150714
  4. GLUCOSE [Concomitant]
     Active Substance: DEXTROSE
     Indication: NUTRITIONAL SUPPLEMENTATION
     Route: 042
     Dates: start: 20150703, end: 20150713
  5. INSULIN [Concomitant]
     Active Substance: INSULIN NOS
     Indication: HYPOGLYCAEMIA
     Route: 042
     Dates: start: 20150704, end: 20150713
  6. AMINO ACID [Concomitant]
     Indication: NUTRITIONAL SUPPLEMENTATION
     Route: 042
     Dates: start: 20150711, end: 20150713
  7. GLUCOSE [Concomitant]
     Active Substance: DEXTROSE
     Indication: NUTRITIONAL SUPPLEMENTATION
     Route: 042
     Dates: start: 20150710, end: 20150712
  8. AZD2281 [Suspect]
     Active Substance: OLAPARIB
     Indication: NEOPLASM MALIGNANT
     Dosage: 100.0MG ONCE/SINGLE ADMINISTRATION
     Route: 048
     Dates: start: 20150623, end: 20150623
  9. COMPOUND GLYCYRRHIZIN [Concomitant]
     Indication: LIVER DISORDER
     Route: 042
     Dates: start: 20150704, end: 20150709
  10. POTASSIUM CHLORIDE. [Concomitant]
     Active Substance: POTASSIUM CHLORIDE
     Indication: NUTRITIONAL SUPPLEMENTATION
     Route: 042
     Dates: start: 20150703, end: 20150713
  11. POTASSIUM CHLORIDE. [Concomitant]
     Active Substance: POTASSIUM CHLORIDE
     Indication: NUTRITIONAL SUPPLEMENTATION
     Route: 042
     Dates: start: 20150710, end: 20150712
  12. SODIUM CHLORIDE. [Concomitant]
     Active Substance: SODIUM CHLORIDE
     Indication: NUTRITIONAL SUPPLEMENTATION
     Route: 042
     Dates: start: 20150703, end: 20150713
  13. GELATUM ALUMINI PHOSPHATIS [Concomitant]
     Indication: GASTROOESOPHAGEAL REFLUX PROPHYLAXIS
     Route: 048
     Dates: start: 20150623
  14. GLUCOSE [Concomitant]
     Active Substance: DEXTROSE
     Indication: NUTRITIONAL SUPPLEMENTATION
     Route: 042
     Dates: start: 20150704, end: 20150713
  15. PACLITAXEL. [Suspect]
     Active Substance: PACLITAXEL
     Indication: NEOPLASM MALIGNANT
     Dosage: 80 MG/M2 OVER 1 HR
     Route: 042
     Dates: start: 20150704, end: 20150704
  16. MOSA BILLY CITRATE [Concomitant]
     Indication: DYSPEPSIA
     Route: 048
     Dates: start: 20150624
  17. ALANINE GLUTAMINE [Concomitant]
     Indication: NUTRITIONAL SUPPLEMENTATION
     Route: 042
     Dates: start: 20150707, end: 20150713
  18. MULTI-VINYL PHOSPHATIDYLCHOLINE [Concomitant]
     Indication: LIVER DISORDER
     Route: 042
     Dates: start: 20150710, end: 20150714
  19. FAT SOLUBLE VITAMIN FOR INJECTION [Concomitant]
     Indication: NUTRITIONAL SUPPLEMENTATION
     Dosage: 1 BOTTLE DAILY
     Route: 042
     Dates: start: 20150707, end: 20150710
  20. POTASSIUM CHLORIDE. [Concomitant]
     Active Substance: POTASSIUM CHLORIDE
     Indication: NUTRITIONAL SUPPLEMENTATION
     Route: 042
     Dates: start: 20150704, end: 20150713
  21. AZD2281 [Suspect]
     Active Substance: OLAPARIB
     Indication: NEOPLASM MALIGNANT
     Dosage: 100.0MG ONCE/SINGLE ADMINISTRATION
     Route: 048
     Dates: start: 20150626
  22. GLUCOSE [Concomitant]
     Active Substance: DEXTROSE
     Indication: NUTRITIONAL SUPPLEMENTATION
     Route: 042
     Dates: start: 20150704, end: 20150713
  23. GLUCOSE [Concomitant]
     Active Substance: DEXTROSE
     Indication: NUTRITIONAL SUPPLEMENTATION
     Route: 042
     Dates: start: 20150710, end: 20150712
  24. MEGESTEROL ACETATE [Concomitant]
     Indication: PALLIATIVE CARE
     Route: 048
     Dates: start: 20150624
  25. REDUCED GLUTATHIONE [Concomitant]
     Indication: LIVER DISORDER
     Route: 042
     Dates: start: 20150703, end: 20150714
  26. INSULIN [Concomitant]
     Active Substance: INSULIN NOS
     Indication: HYPOGLYCAEMIA
     Route: 042
     Dates: start: 20150704, end: 20150713

REACTIONS (1)
  - Liver injury [Not Recovered/Not Resolved]

NARRATIVE: CASE EVENT DATE: 20150712
